FAERS Safety Report 9980983 (Version 1)
Quarter: 2014Q1

REPORT INFORMATION
  Report Type: Spontaneous
  Country: GB (occurrence: None)
  Receive Date: 20140305
  Receipt Date: 20140305
  Transmission Date: 20141002
  Serious: Yes (Other)
  Sender: FDA-Public Use
  Company Number: AUR-APL-2014-012142

PATIENT
  Age: 4 Decade
  Sex: 0

DRUGS (5)
  1. LAMOTRIGINE [Suspect]
     Indication: PRODUCT USED FOR UNKNOWN INDICATION
     Dosage: 200 MG, 2 IN 1 D
     Route: 048
     Dates: start: 201309, end: 20131104
  2. RISPERIDONE [Suspect]
     Indication: PRODUCT USED FOR UNKNOWN INDICATION
     Dosage: 1 MG 1 IN 1 D
     Route: 048
  3. CLOBAZAM [Concomitant]
  4. LEVETIRACETAM [Concomitant]
  5. TOPIRAMATE [Concomitant]

REACTIONS (2)
  - Urticaria [None]
  - Convulsion [None]
